FAERS Safety Report 4381971-9 (Version None)
Quarter: 2004Q2

REPORT INFORMATION
  Report Type: 
  Country: None (occurrence: None)
  Receive Date: 20040615
  Receipt Date: 20040608
  Transmission Date: 20050107
  Serious: Yes (Other)
  Sender: FDA-Public Use
  Company Number: ATO-04-0533

PATIENT
  Age: 61 Year
  Sex: Male

DRUGS (1)
  1. TRISENOX [Suspect]
     Indication: MYELODYSPLASTIC SYNDROME
     Dosage: 26 MILLIGRAMS (0.25 MG/KG, QD 5X/WK) IVI
     Route: 042
     Dates: start: 20040510, end: 20040521

REACTIONS (6)
  - BLINDNESS TRANSIENT [None]
  - DIPLOPIA [None]
  - DIZZINESS [None]
  - EYE IRRITATION [None]
  - LACRIMATION INCREASED [None]
  - VISION BLURRED [None]
